FAERS Safety Report 13012069 (Version 2)
Quarter: 2016Q4

REPORT INFORMATION
  Report Type: Spontaneous
  Country: US (occurrence: US)
  Receive Date: 20161209
  Receipt Date: 20161226
  Transmission Date: 20170207
  Serious: Yes (Other)
  Sender: FDA-Public Use
  Company Number: US-ALEXION PHARMACEUTICALS INC-A201609486

PATIENT
  Sex: Female

DRUGS (2)
  1. STRENSIQ [Suspect]
     Active Substance: ASFOTASE ALFA
     Indication: HYPOPHOSPHATASIA
     Dosage: UNK, TIW
     Route: 058
     Dates: start: 20160220
  2. STRENSIQ [Suspect]
     Active Substance: ASFOTASE ALFA
     Dosage: UNK, TIW
     Route: 058

REACTIONS (4)
  - Cough [Unknown]
  - Retching [Unknown]
  - Chest pain [Unknown]
  - Fatigue [Unknown]

NARRATIVE: CASE EVENT DATE: 20161127
